FAERS Safety Report 8106635-7 (Version None)
Quarter: 2012Q1

REPORT INFORMATION
  Report Type: 
  Country: None (occurrence: None)
  Receive Date: 20120202
  Receipt Date: 20120120
  Transmission Date: 20120608
  Serious: Yes (Hospitalization)
  Sender: FDA-Public Use
  Company Number: FR-UCBSA-021345

PATIENT
  Age: 76 Year
  Sex: Male

DRUGS (4)
  1. RAMIPRIL [Suspect]
     Route: 048
     Dates: end: 20100925
  2. GLUCOPHAGE [Suspect]
     Route: 048
     Dates: end: 20100925
  3. XYZAL [Suspect]
     Route: 048
     Dates: end: 20100925
  4. FLUTICASONE PROPIONATE/SALMETEROL [Suspect]
     Route: 055
     Dates: end: 20100925

REACTIONS (3)
  - PRODUCTIVE COUGH [None]
  - LUNG DISORDER [None]
  - ASTHENIA [None]
